FAERS Safety Report 16637825 (Version 2)
Quarter: 2019Q3

REPORT INFORMATION
  Report Type: Spontaneous
  Country: US (occurrence: US)
  Receive Date: 20190726
  Receipt Date: 20190807
  Transmission Date: 20191004
  Serious: Yes (Other)
  Sender: FDA-Public Use
  Company Number: US-JAZZ-JPI-P-021402

PATIENT
  Age: 30 Year
  Sex: Female
  Weight: 59.91 kg

DRUGS (7)
  1. METOCLOPRAMIDE. [Suspect]
     Active Substance: METOCLOPRAMIDE
     Indication: VOMITING
  2. XYREM [Suspect]
     Active Substance: SODIUM OXYBATE
     Indication: CATAPLEXY
     Dosage: 2.25 G, BID
     Route: 048
     Dates: start: 20080311
  3. XYREM [Suspect]
     Active Substance: SODIUM OXYBATE
     Dosage: 9 G, QD
     Route: 048
     Dates: start: 2017
  4. METOCLOPRAMIDE. [Suspect]
     Active Substance: METOCLOPRAMIDE
     Indication: NAUSEA
     Route: 048
  5. XYREM [Suspect]
     Active Substance: SODIUM OXYBATE
     Indication: NARCOLEPSY
     Dosage: UNK UNKNOWN, SINGLE
     Route: 048
     Dates: end: 20120411
  6. XYREM [Suspect]
     Active Substance: SODIUM OXYBATE
     Dosage: 4.5 G, BID
     Route: 048
     Dates: start: 20120412
  7. SYNTHROID [Concomitant]
     Active Substance: LEVOTHYROXINE SODIUM
     Indication: HYPOTHYROIDISM

REACTIONS (11)
  - Nasal congestion [Recovering/Resolving]
  - Anxiety [Unknown]
  - Diarrhoea [Recovering/Resolving]
  - Weight decreased [Unknown]
  - Dehydration [Unknown]
  - Syncope [Recovered/Resolved]
  - Pyrexia [Recovering/Resolving]
  - Oropharyngeal pain [Recovering/Resolving]
  - Viral infection [Recovered/Resolved]
  - Vomiting [Recovering/Resolving]
  - Nausea [Recovering/Resolving]

NARRATIVE: CASE EVENT DATE: 201204
